FAERS Safety Report 5394976-6 (Version None)
Quarter: 2007Q3

REPORT INFORMATION
  Report Type: 
  Country: None (occurrence: None)
  Receive Date: 20070724
  Receipt Date: 20070714
  Transmission Date: 20080115
  Serious: Yes (Hospitalization, Other)
  Sender: FDA-Public Use
  Company Number: PHBS2007JP12131

PATIENT
  Age: 43 Year
  Sex: Female

DRUGS (2)
  1. DIOVAN [Suspect]
     Dosage: 80 MG, UNK
  2. HIGROTON [Suspect]
     Dosage: 12.5 MG, UNK

REACTIONS (3)
  - HYPERTENSION [None]
  - NEPHROLITHIASIS [None]
  - RENAL PAIN [None]
